FAERS Safety Report 5599410-9 (Version None)
Quarter: 2008Q1

REPORT INFORMATION
  Report Type: 
  Country: None (occurrence: None)
  Receive Date: 20080122
  Receipt Date: 20080110
  Transmission Date: 20080703
  Serious: Yes (Other)
  Sender: FDA-Public Use
  Company Number: FR-PFIZER INC-2007097672

PATIENT
  Sex: Female
  Weight: 65 kg

DRUGS (2)
  1. LYRICA [Suspect]
     Indication: FACIAL NEURALGIA
  2. DEROXAT [Concomitant]

REACTIONS (4)
  - MALAISE [None]
  - MOBILITY DECREASED [None]
  - PERIPHERAL COLDNESS [None]
  - TREMOR [None]
